FAERS Safety Report 6082579-X (Version None)
Quarter: 2009Q1

REPORT INFORMATION
  Report Type: 
  Country: None (occurrence: None)
  Receive Date: 20090218
  Receipt Date: 20090206
  Transmission Date: 20090719
  Serious: Yes (Death)
  Sender: FDA-Public Use
  Company Number: FR-PFIZER INC-2009166694

PATIENT

DRUGS (2)
  1. LYRICA [Suspect]
  2. TRAMADOL HYDROCHLORIDE [Concomitant]

REACTIONS (1)
  - DEATH [None]
